FAERS Safety Report 11433819 (Version 1)
Quarter: 2015Q3

REPORT INFORMATION
  Report Type: Spontaneous
  Country: US (occurrence: None)
  Receive Date: 20150811
  Receipt Date: 20150811
  Transmission Date: 20151125
  Serious: Yes (Other)
  Sender: FDA-Public Use
  Company Number: CO-UX-US-2015-007

PATIENT

DRUGS (1)
  1. ALFUZOSIN HYDROCHLORIDE (UNKNOWN) (ALFUZOSIN HYDROCHLORIDE) [Suspect]
     Active Substance: ALFUZOSIN HYDROCHLORIDE

REACTIONS (1)
  - Drug-induced liver injury [None]
